FAERS Safety Report 8345672-4 (Version None)
Quarter: 2012Q2

REPORT INFORMATION
  Report Type: 
  Country: None (occurrence: None)
  Receive Date: 20120508
  Receipt Date: 20120430
  Transmission Date: 20120825
  Serious: Yes (Hospitalization)
  Sender: FDA-Public Use
  Company Number: US-RB-039877-12

PATIENT
  Age: 40 Year
  Sex: Male

DRUGS (2)
  1. ADDERALL 5 [Concomitant]
     Indication: ATTENTION DEFICIT/HYPERACTIVITY DISORDER
     Dosage: DOSING DETAILS UNKNOWN
     Route: 065
     Dates: start: 20070101, end: 20120401
  2. SUBOXONE [Suspect]
     Indication: DRUG DEPENDENCE
     Dosage: DAILY DOSE UNKNOWN
     Route: 060
     Dates: start: 20050101, end: 20120401

REACTIONS (4)
  - INFLUENZA LIKE ILLNESS [None]
  - DRUG WITHDRAWAL SYNDROME [None]
  - PAIN [None]
  - DETOXIFICATION [None]
